FAERS Safety Report 9374812 (Version 2)
Quarter: 2014Q1

REPORT INFORMATION
  Report Type: Spontaneous
  Country: US (occurrence: US)
  Receive Date: 20130628
  Receipt Date: 20140207
  Transmission Date: 20141002
  Serious: Yes (Hospitalization)
  Sender: FDA-Public Use
  Company Number: US-B.I. PHARMACEUTICALS,INC./RIDGEFIELD-2013-BI-18736BP

PATIENT
  Age: 72 Year
  Sex: Male
  Weight: 101.6 kg

DRUGS (13)
  1. PRADAXA [Suspect]
     Indication: ATRIAL FIBRILLATION
     Dosage: 300 MG
     Route: 048
     Dates: start: 20110929, end: 20120704
  2. AMARYL [Concomitant]
  3. AMIODARONE [Concomitant]
  4. ASPIRIN [Concomitant]
  5. FUROSEMIDE [Concomitant]
     Dates: start: 2000
  6. HYDRALAZINE [Concomitant]
     Dates: start: 2008
  7. LISINOPRIL [Concomitant]
     Dates: start: 2000
  8. NIFEDIPINE [Concomitant]
     Dates: start: 2000
  9. POTASSIUM [Concomitant]
     Dates: start: 2000
  10. TERAZOSIN [Concomitant]
     Dates: start: 2008
  11. VITAMIN B COMPLEX [Concomitant]
  12. ZETIA [Concomitant]
     Dates: start: 2003
  13. GLIMEPIRIDE [Concomitant]
     Dates: start: 2010

REACTIONS (6)
  - Haematuria [Unknown]
  - Haemorrhage [Unknown]
  - Haematuria [Unknown]
  - Haemorrhage urinary tract [Unknown]
  - Renal haemorrhage [Unknown]
  - Contusion [Unknown]
